FAERS Safety Report 6828594-7 (Version None)
Quarter: 2010Q3

REPORT INFORMATION
  Report Type: 
  Country: None (occurrence: None)
  Receive Date: 20100702
  Receipt Date: 20100618
  Transmission Date: 20110219
  Serious: Yes (Death)
  Sender: FDA-Public Use
  Company Number: A-US2010-37582

PATIENT
  Age: 74 Year
  Sex: Male

DRUGS (2)
  1. TRACLEER [Suspect]
     Indication: PULMONARY ARTERIAL HYPERTENSION
     Dates: start: 20091026, end: 20100617
  2. COUMADIN [Concomitant]

REACTIONS (4)
  - IDIOPATHIC PULMONARY FIBROSIS [None]
  - OFF LABEL USE [None]
  - PNEUMONIA [None]
  - RESPIRATORY FAILURE [None]
